FAERS Safety Report 18832934 (Version 1)
Quarter: 2021Q1

REPORT INFORMATION
  Report Type: Spontaneous
  Country: TW (occurrence: TW)
  Receive Date: 20210201
  Receipt Date: 20210201
  Transmission Date: 20210419
  Serious: Yes (Death)
  Sender: FDA-Public Use
  Company Number: TW-AMGEN-TWNSP2021015651

PATIENT
  Age: 74 Year
  Sex: Female

DRUGS (2)
  1. ENBREL [Suspect]
     Active Substance: ETANERCEPT
     Indication: RHEUMATOID ARTHRITIS
     Dosage: 25 MILLIGRAM, 2 TIMES/WK
     Route: 058
     Dates: start: 200907
  2. ENBREL [Suspect]
     Active Substance: ETANERCEPT
     Dosage: 25 MILLIGRAM,  6 DOSE FORMS PER MONTH
     Route: 058

REACTIONS (3)
  - Fall [Fatal]
  - Haemorrhage intracranial [Fatal]
  - Off label use [Unknown]

NARRATIVE: CASE EVENT DATE: 20210122
